FAERS Safety Report 5230308-1 (Version None)
Quarter: 2007Q1

REPORT INFORMATION
  Report Type: 
  Country: None (occurrence: None)
  Receive Date: 20070206
  Receipt Date: 20070126
  Transmission Date: 20070707
  Serious: Yes (Other)
  Sender: FDA-Public Use
  Company Number: PHBS2007KR01710

PATIENT
  Sex: Male

DRUGS (1)
  1. ZOMETA [Suspect]
     Route: 065

REACTIONS (3)
  - FACIAL PAIN [None]
  - OSTEONECROSIS [None]
  - TOOTH DISORDER [None]
